FAERS Safety Report 11678596 (Version 2)
Quarter: 2016Q1

REPORT INFORMATION
  Report Type: Spontaneous
  Country: US (occurrence: US)
  Receive Date: 20151028
  Receipt Date: 20160119
  Transmission Date: 20160525
  Serious: Yes (Hospitalization, Other)
  Sender: FDA-Public Use
  Company Number: US-ELI_LILLY_AND_COMPANY-US201510008706

PATIENT
  Age: 50 Year
  Sex: Male
  Weight: 94.33 kg

DRUGS (5)
  1. ANDROGEL [Suspect]
     Active Substance: TESTOSTERONE
     Indication: ANDROGEN REPLACEMENT THERAPY
     Dosage: UNK UNK, UNKNOWN
     Route: 065
     Dates: start: 2010
  2. AXIRON [Suspect]
     Active Substance: TESTOSTERONE
     Dosage: UNK UNK, UNKNOWN
     Route: 065
     Dates: start: 20140626
  3. AXIRON [Suspect]
     Active Substance: TESTOSTERONE
     Indication: ANDROGEN REPLACEMENT THERAPY
     Dosage: UNK UNK, UNKNOWN
     Route: 065
     Dates: start: 2013
  4. ANDROGEL [Suspect]
     Active Substance: TESTOSTERONE
     Dosage: 5 G, QD
     Route: 061
     Dates: start: 20110919
  5. ANDROGEL [Suspect]
     Active Substance: TESTOSTERONE
     Dosage: 7.5 G, QD
     Route: 061
     Dates: start: 20120525, end: 201305

REACTIONS (3)
  - Cerebrovascular accident [Unknown]
  - Cerebrovascular accident [Not Recovered/Not Resolved]
  - Cerebrovascular accident [Unknown]

NARRATIVE: CASE EVENT DATE: 20130409
